FAERS Safety Report 9125113 (Version 1)
Quarter: 2013Q1

REPORT INFORMATION
  Report Type: Spontaneous
  Country: US (occurrence: US)
  Receive Date: 20130117
  Receipt Date: 20130117
  Transmission Date: 20140127
  Serious: Yes (Hospitalization, Other)
  Sender: FDA-Public Use
  Company Number: US-PFIZER INC-2013019677

PATIENT
  Age: 56 Year
  Sex: Female
  Weight: 46.71 kg

DRUGS (5)
  1. AMLODIPINE BESILATE [Suspect]
     Indication: CARDIAC DISORDER
     Dosage: 10 MG, DAILY
     Dates: start: 201002
  2. COUMADIN [Suspect]
     Dosage: UNK
  3. BUMEX [Concomitant]
     Indication: FLUID RETENTION
     Dosage: 4 MG, 2X/DAY
  4. SYNTHROID [Concomitant]
     Indication: THYROID DISORDER
     Dosage: 0.125 MG, DAILY
  5. ASPIRIN [Concomitant]
     Indication: PROPHYLAXIS
     Dosage: 81 MG, UNK

REACTIONS (7)
  - Gastric disorder [Unknown]
  - Cardiac disorder [Unknown]
  - Pulmonary hypertension [Unknown]
  - Gastric haemorrhage [Unknown]
  - Abdominal pain upper [Unknown]
  - Discomfort [Unknown]
  - Drug ineffective [Unknown]
